FAERS Safety Report 8096913-2 (Version None)
Quarter: 2012Q1

REPORT INFORMATION
  Report Type: 
  Country: None (occurrence: None)
  Receive Date: 20120129
  Receipt Date: 20111115
  Transmission Date: 20120608
  Serious: No
  Sender: FDA-Public Use
  Company Number: US-ABBOTT-11P-163-0874538-00

PATIENT
  Age: 69 Year
  Sex: Female

DRUGS (4)
  1. CYCLOBENZAPRINE [Concomitant]
     Indication: MUSCLE SPASMS
     Dosage: AT BEDTIME
  2. OMETRAZOLE [Concomitant]
     Indication: GASTROOESOPHAGEAL REFLUX PROPHYLAXIS
  3. HUMIRA [Suspect]
     Indication: RHEUMATOID ARTHRITIS
     Dates: start: 20110701
  4. MELOXICAM [Concomitant]
     Indication: PAIN

REACTIONS (1)
  - LUNG INFECTION [None]
